FAERS Safety Report 12272722 (Version 2)
Quarter: 2016Q3

REPORT INFORMATION
  Report Type: Spontaneous
  Country: US (occurrence: US)
  Receive Date: 20160415
  Receipt Date: 20160829
  Transmission Date: 20161109
  Serious: No
  Sender: FDA-Public Use
  Company Number: US-PFIZER INC-2016206263

PATIENT
  Age: 76 Year
  Sex: Female
  Weight: 73.48 kg

DRUGS (3)
  1. CELEBREX [Suspect]
     Active Substance: CELECOXIB
     Indication: ARTHRITIS
     Dosage: 200 MG, TWICE A DAY
     Dates: end: 20160325
  2. ISOSORB MONO ER [Concomitant]
     Indication: CARDIAC DISORDER
     Dosage: 120 MG, DAILY
  3. FENOFIBRATE. [Concomitant]
     Active Substance: FENOFIBRATE
     Indication: CARDIAC DISORDER
     Dosage: 149 MG, ONE TABLET DAILY

REACTIONS (1)
  - Cardiac disorder [Unknown]
